FAERS Safety Report 5116222-0 (Version None)
Quarter: 2006Q3

REPORT INFORMATION
  Report Type: 
  Country: None (occurrence: None)
  Receive Date: 20060927
  Receipt Date: 20060804
  Transmission Date: 20061208
  Serious: Yes (Death)
  Sender: FDA-Public Use
  Company Number: US-GLAXOSMITHKLINE-A0615306A

PATIENT
  Age: 38 Year
  Sex: Male

DRUGS (2)
  1. LAMICTAL [Suspect]
     Indication: BIPOLAR DISORDER
     Dosage: 25MG PER DAY
     Route: 048
     Dates: start: 20060701, end: 20060801
  2. SEROQUEL [Concomitant]

REACTIONS (4)
  - HEPATIC FAILURE [None]
  - HOMICIDE [None]
  - INSOMNIA [None]
  - TACHYCARDIA [None]
